FAERS Safety Report 4738244-1 (Version None)
Quarter: 2005Q3

REPORT INFORMATION
  Report Type: 
  Country: None (occurrence: None)
  Receive Date: 20050803
  Receipt Date: 20050128
  Transmission Date: 20060218
  Serious: No
  Sender: FDA-Public Use
  Company Number: 2004-123524-NL

PATIENT
  Age: 32 Year
  Sex: Female

DRUGS (7)
  1. NUVARING [Suspect]
     Dosage: DF
     Dates: start: 20040501, end: 20041114
  2. METOPIMAZINE [Concomitant]
  3. ROXITHROMYCIN [Concomitant]
  4. IBUPROFEN [Concomitant]
  5. PRISTINAMYCIN [Concomitant]
  6. RHINADVIL [Concomitant]
  7. PREDNAZOLINE [Concomitant]

REACTIONS (5)
  - DRUG EXPOSURE DURING PREGNANCY [None]
  - METABOLIC DISORDER [None]
  - PREGNANCY WITH CONTRACEPTIVE DEVICE [None]
  - UNINTENDED PREGNANCY [None]
  - VAGINAL CONTRACEPTIVE DEVICE EXPELLED [None]
